FAERS Safety Report 10273353 (Version 1)
Quarter: 2014Q3

REPORT INFORMATION
  Report Type: Spontaneous
  Country: US (occurrence: US)
  Receive Date: 20140702
  Receipt Date: 20140702
  Transmission Date: 20150326
  Serious: Yes (Other)
  Sender: FDA-Public Use
  Company Number: US-JNJFOC-20140619764

PATIENT
  Age: 65 Year
  Sex: Female
  Weight: 81.19 kg

DRUGS (6)
  1. ULTRAM [Suspect]
     Active Substance: TRAMADOL HYDROCHLORIDE
     Indication: PAIN
     Dosage: 100 MGX2  50 MG
     Route: 048
  2. TRAMADOL HYDROCHLORIDE. [Suspect]
     Active Substance: TRAMADOL HYDROCHLORIDE
     Indication: PAIN
     Dosage: 100 MG THRICE DAILY
     Route: 048
  3. ULTRAM [Suspect]
     Active Substance: TRAMADOL HYDROCHLORIDE
     Indication: PAIN
     Dosage: 100 MG THRICE DAILY
     Route: 048
  4. ULTRAM [Suspect]
     Active Substance: TRAMADOL HYDROCHLORIDE
     Indication: PAIN
     Dosage: 100 MG TWICE DAILY
     Route: 048
  5. ULTRAM [Suspect]
     Active Substance: TRAMADOL HYDROCHLORIDE
     Indication: PAIN
     Dosage: 100 MG ONCE DAILY
     Route: 048
  6. ULTRAM [Suspect]
     Active Substance: TRAMADOL HYDROCHLORIDE
     Indication: PAIN
     Dosage: 50 MG ONCE A DAY
     Route: 048

REACTIONS (4)
  - Hernia [Unknown]
  - Breakthrough pain [Unknown]
  - Drug dose omission [Recovered/Resolved]
  - Gastric fistula [Unknown]

NARRATIVE: CASE EVENT DATE: 20140115
